FAERS Safety Report 7403323 (Version 6)
Quarter: 2012Q4

REPORT INFORMATION
  Report Type: 
  Country: JP (occurrence: JP)
  Receive Date: 20100528
  Receipt Date: 20121029
  Transmission Date: 20130627
  Serious: Yes (Death, Hospitalization, Other)
  Sender: FDA-Public Use
  Company Number: JP-ROCHE-704897

PATIENT
  Age: 56 Year
  Sex: Male
  Weight: 59 kg

DRUGS (10)
  1. BEVACIZUMAB [Suspect]
     Indication: LARGE CELL LUNG CANCER METASTATIC
     Route: 041
     Dates: start: 20100126, end: 20100126
  2. BEVACIZUMAB [Suspect]
     Route: 041
     Dates: start: 20100223, end: 20100223
  3. CARBOPLATIN [Concomitant]
     Indication: LARGE CELL LUNG CANCER METASTATIC
     Dosage: DOSAGE :UNCERTAIN
     Route: 041
     Dates: start: 20100126, end: 20100126
  4. CARBOPLATIN [Concomitant]
     Route: 041
     Dates: start: 20100223, end: 20100223
  5. PACLITAXEL [Concomitant]
     Indication: LARGE CELL LUNG CANCER METASTATIC
     Dosage: DOSAGE: UNCERTAIN
     Route: 041
     Dates: start: 20100126, end: 20100126
  6. PACLITAXEL [Concomitant]
     Route: 041
     Dates: start: 20100223, end: 20100223
  7. WARFARIN [Concomitant]
     Route: 048
     Dates: start: 20091228, end: 20100315
  8. OXYCONTIN [Concomitant]
     Route: 048
     Dates: end: 201003
  9. PREDONINE [Concomitant]
     Route: 048
     Dates: end: 201003
  10. LOXONIN [Concomitant]
     Indication: PROPHYLAXIS
     Dosage: form:POR
     Route: 048
     Dates: end: 201003

REACTIONS (4)
  - Disease progression [Fatal]
  - Haemothorax [Recovered/Resolved]
  - Haemoptysis [Recovered/Resolved]
  - Haemoptysis [Recovered/Resolved]
